FAERS Safety Report 20984817 (Version 1)
Quarter: 2022Q2

REPORT INFORMATION
  Report Type: Other
  Country: US (occurrence: None)
  Receive Date: 20220621
  Receipt Date: 20220621
  Transmission Date: 20220721
  Serious: No
  Sender: FDA-Public Use
  Company Number: US-ROCHE-2885488

PATIENT
  Age: 8 Year
  Sex: Male

DRUGS (4)
  1. CAPECITABINE [Suspect]
     Active Substance: CAPECITABINE
     Indication: Neuroendocrine tumour
     Dosage: FOUR CYCLES
     Route: 048
  2. TEMOZOLOMIDE [Concomitant]
     Active Substance: TEMOZOLOMIDE
  3. OCTREOTIDE [Concomitant]
     Active Substance: OCTREOTIDE
  4. EVEROLIMUS [Concomitant]
     Active Substance: EVEROLIMUS

REACTIONS (1)
  - Anaemia [Unknown]
